FAERS Safety Report 8267607-5 (Version None)
Quarter: 2012Q2

REPORT INFORMATION
  Report Type: 
  Country: None (occurrence: None)
  Receive Date: 20120409
  Receipt Date: 20120329
  Transmission Date: 20120825
  Serious: Yes (Other)
  Sender: FDA-Public Use
  Company Number: US-GENZYME-THYM-1003201

PATIENT
  Sex: Male

DRUGS (3)
  1. THYMOGLOBULIN [Suspect]
     Indication: HEART TRANSPLANT REJECTION
     Dosage: 50 MG, UNK
     Route: 042
  2. THYMOGLOBULIN [Suspect]
     Dosage: 75 MG, UNK
     Route: 042
     Dates: start: 20120318, end: 20120318
  3. THYMOGLOBULIN [Suspect]
     Dosage: 50 MG, UNK
     Route: 042

REACTIONS (5)
  - PETECHIAE [None]
  - PYREXIA [None]
  - LYMPHOPENIA [None]
  - RASH PRURITIC [None]
  - RASH [None]
